FAERS Safety Report 18653861 (Version 1)
Quarter: 2020Q4

REPORT INFORMATION
  Report Type: Spontaneous
  Country: JP (occurrence: JP)
  Receive Date: 20201223
  Receipt Date: 20201223
  Transmission Date: 20210114
  Serious: Yes (Hospitalization, Other)
  Sender: FDA-Public Use
  Company Number: JP-NEXUS PHARMA-000027

PATIENT
  Age: 51 Year
  Sex: Male
  Weight: 72 kg

DRUGS (3)
  1. ISOPROTERENOL HYDROCHLORIDE. [Suspect]
     Active Substance: ISOPROTERENOL HYDROCHLORIDE
     Indication: PRODUCT USED FOR UNKNOWN INDICATION
     Dosage: 0.1 MICROGRAM/KG/MIN
  2. PILSICAINIDE/PILSICAINIDE HYDROCHLORIDE [Suspect]
     Active Substance: PILSICAINIDE HYDROCHLORIDE
     Indication: SINUS RHYTHM
  3. THIAMYLAL [Suspect]
     Active Substance: THIAMYLAL
     Indication: PRODUCT USED FOR UNKNOWN INDICATION

REACTIONS (3)
  - Stress cardiomyopathy [Recovered/Resolved]
  - Pulseless electrical activity [Recovered/Resolved]
  - Atrial fibrillation [Recovered/Resolved]
